FAERS Safety Report 12092510 (Version 1)
Quarter: 2016Q1

REPORT INFORMATION
  Report Type: Spontaneous
  Country: AU (occurrence: AU)
  Receive Date: 20160219
  Receipt Date: 20160219
  Transmission Date: 20160526
  Serious: Yes (Other)
  Sender: FDA-Public Use
  Company Number: AU-CIPLA LTD.-2016AU01165

PATIENT

DRUGS (2)
  1. GEMCITABINE [Suspect]
     Active Substance: GEMCITABINE\GEMCITABINE HYDROCHLORIDE
     Indication: BLADDER TRANSITIONAL CELL CARCINOMA
     Dosage: 1000MG/M2 ON DAYS 1 AND 8, EVERY 3 WEEKS FOR 4 CYCLES
     Route: 065
     Dates: start: 201401, end: 201403
  2. CISPLATIN. [Suspect]
     Active Substance: CISPLATIN
     Indication: BLADDER TRANSITIONAL CELL CARCINOMA
     Dosage: 70 MG/M2 ON DAY 8, EVERY 3 WEEKS FOR 4 CYCLES
     Route: 065
     Dates: start: 201401, end: 201403

REACTIONS (6)
  - Urinary tract infection pseudomonal [Recovered/Resolved]
  - Fatigue [Recovered/Resolved]
  - Prostate cancer [Recovered/Resolved]
  - Ileus [Recovered/Resolved]
  - Lymphocele [Recovered/Resolved]
  - Mucosal inflammation [Recovered/Resolved]
